FAERS Safety Report 7052123-9 (Version None)
Quarter: 2010Q4

REPORT INFORMATION
  Report Type: 
  Country: None (occurrence: None)
  Receive Date: 20101013
  Receipt Date: 20100930
  Transmission Date: 20110411
  Serious: Yes (Death, Other)
  Sender: FDA-Public Use
  Company Number: 2010MA002728

PATIENT
  Age: 66 Year
  Sex: Male

DRUGS (3)
  1. TRAMADOL HCL [Suspect]
     Indication: ANALGESIC THERAPY
  2. FENTANYL [Concomitant]
     Indication: ANALGESIC THERAPY
     Dosage: TDER
     Route: 062
     Dates: start: 20090917
  3. FLUIXETUNE [Concomitant]

REACTIONS (6)
  - COMPLETED SUICIDE [None]
  - DRUG INTERACTION [None]
  - DRUG TOXICITY [None]
  - EMPHYSEMA [None]
  - MULTIPLE DRUG OVERDOSE [None]
  - MYOCARDIAL ISCHAEMIA [None]
